FAERS Safety Report 24540436 (Version 2)
Quarter: 2024Q4

REPORT INFORMATION
  Report Type: Spontaneous
  Country: CZ (occurrence: CZ)
  Receive Date: 20241023
  Receipt Date: 20241112
  Transmission Date: 20250115
  Serious: Yes (Other)
  Sender: SANDOZ
  Company Number: CZ-ROCHE-10000102842

PATIENT
  Age: 75 Year
  Sex: Male

DRUGS (9)
  1. ATEZOLIZUMAB [Suspect]
     Active Substance: ATEZOLIZUMAB
     Indication: Adenocarcinoma
     Dosage: UNK
     Route: 065
     Dates: end: 202202
  2. BEVACIZUMAB [Suspect]
     Active Substance: BEVACIZUMAB
     Indication: Adenocarcinoma
     Dosage: UNK
     Route: 065
  3. CARBOPLATIN [Suspect]
     Active Substance: CARBOPLATIN
     Indication: Adenocarcinoma
     Dosage: UNK
     Route: 065
     Dates: start: 202107, end: 202109
  4. ERLOTINIB [Suspect]
     Active Substance: ERLOTINIB
     Indication: Adenocarcinoma
     Dosage: UNK
     Route: 065
  5. ERLOTINIB [Suspect]
     Active Substance: ERLOTINIB
     Dosage: UNK
     Route: 065
  6. PEMETREXED [Suspect]
     Active Substance: PEMETREXED
     Indication: Adenocarcinoma
     Dosage: UNK
     Route: 065
     Dates: start: 202107, end: 202109
  7. PEMETREXED [Suspect]
     Active Substance: PEMETREXED
     Dosage: UNK
     Route: 065
     Dates: start: 202107, end: 202109
  8. DOCETAXEL [Concomitant]
     Active Substance: DOCETAXEL
     Indication: Product used for unknown indication
     Dosage: UNK
     Route: 065
  9. SOTORASIB [Concomitant]
     Active Substance: SOTORASIB
     Indication: Product used for unknown indication
     Route: 065

REACTIONS (5)
  - Metastases to lung [Unknown]
  - Neutropenia [Unknown]
  - Disease progression [Unknown]
  - Diarrhoea [Unknown]
  - Rash [Unknown]
